FAERS Safety Report 4929055-2 (Version None)
Quarter: 2006Q1

REPORT INFORMATION
  Report Type: 
  Country: None (occurrence: None)
  Receive Date: 20060301
  Receipt Date: 20060221
  Transmission Date: 20060701
  Serious: Yes (Hospitalization, Other)
  Sender: FDA-Public Use
  Company Number: US-MERCK-0602USA05457

PATIENT
  Age: 81 Year
  Sex: Male
  Weight: 107 kg

DRUGS (2)
  1. VIOXX [Suspect]
     Indication: BACK PAIN
     Route: 048
     Dates: start: 20010417, end: 20010825
  2. VIOXX [Suspect]
     Indication: ARTHRALGIA
     Route: 048
     Dates: start: 20010417, end: 20010825

REACTIONS (8)
  - ASTHENIA [None]
  - BRADYCARDIA [None]
  - CEREBROVASCULAR ACCIDENT [None]
  - DIZZINESS [None]
  - HYPOAESTHESIA [None]
  - MELAENA [None]
  - PYREXIA [None]
  - SYNCOPE [None]
